FAERS Safety Report 6440092-1 (Version None)
Quarter: 2009Q4

REPORT INFORMATION
  Report Type: 
  Country: None (occurrence: None)
  Receive Date: 20091113
  Receipt Date: 20081010
  Transmission Date: 20100525
  Serious: No
  Sender: FDA-Public Use
  Company Number: A0751568A

PATIENT
  Age: 82 Year
  Sex: Male

DRUGS (5)
  1. COREG [Suspect]
     Dosage: 12.5MG TWICE PER DAY
     Route: 048
     Dates: start: 20060501
  2. LIPITOR [Concomitant]
  3. LASIX [Concomitant]
  4. ASPIRIN [Concomitant]
  5. PLAVIX [Concomitant]

REACTIONS (2)
  - PERIPHERAL COLDNESS [None]
  - SKIN CHAPPED [None]
